FAERS Safety Report 19478293 (Version 1)
Quarter: 2021Q2

REPORT INFORMATION
  Report Type: Spontaneous
  Country: US (occurrence: US)
  Receive Date: 20210630
  Receipt Date: 20210630
  Transmission Date: 20210717
  Serious: Yes (Hospitalization, Other)
  Sender: FDA-Public Use
  Company Number: NVSC2021US141958

PATIENT
  Age: 13 Year
  Sex: Female
  Weight: 81 kg

DRUGS (7)
  1. KYMRIAH [Suspect]
     Active Substance: TISAGENLECLEUCEL
     Indication: ACUTE LYMPHOCYTIC LEUKAEMIA
     Dosage: UNK UNK, ONCE/SINGLE ((0.0 MG/KG)
     Route: 042
     Dates: start: 20210607, end: 20210607
  2. KEPPRA [Concomitant]
     Active Substance: LEVETIRACETAM
     Indication: SEIZURE PROPHYLAXIS
     Dosage: 500 MG, BID
     Route: 048
     Dates: start: 20210611
  3. ANAKINRA [Concomitant]
     Active Substance: ANAKINRA
     Indication: PRODUCT USED FOR UNKNOWN INDICATION
     Dosage: 100 MG, BID
     Route: 042
     Dates: start: 20210615, end: 20210620
  4. DEXAMETHASONE. [Concomitant]
     Active Substance: DEXAMETHASONE
     Indication: PRODUCT USED FOR UNKNOWN INDICATION
     Dosage: 4 MG, Q8H
     Route: 042
     Dates: start: 20210616
  5. CEFEPIME [Concomitant]
     Active Substance: CEFEPIME HYDROCHLORIDE
     Indication: NEUTROPENIA
     Dosage: 2000 MG, Q8H
     Route: 042
     Dates: start: 20210611
  6. TOCILIZUMAB. [Concomitant]
     Active Substance: TOCILIZUMAB
     Indication: PRODUCT USED FOR UNKNOWN INDICATION
     Dosage: 8 MG/KG, ONCE/SINGLE
     Route: 042
     Dates: start: 20210612
  7. DEXAMETHASONE. [Concomitant]
     Active Substance: DEXAMETHASONE
     Dosage: 4 MG, Q12H
     Route: 042
     Dates: start: 20210618

REACTIONS (14)
  - Fibrin D dimer increased [Unknown]
  - Hypotension [Recovered/Resolved]
  - Headache [Recovered/Resolved]
  - Pyrexia [Recovered/Resolved]
  - Vomiting [Unknown]
  - C-reactive protein increased [Unknown]
  - Activated partial thromboplastin time prolonged [Unknown]
  - Retching [Unknown]
  - Immune effector cell-associated neurotoxicity syndrome [Recovered/Resolved]
  - Inflammation [Unknown]
  - Cytokine release syndrome [Recovered/Resolved]
  - Pleocytosis [Unknown]
  - Oxygen saturation decreased [Unknown]
  - Blood fibrinogen increased [Unknown]

NARRATIVE: CASE EVENT DATE: 20210611
